FAERS Safety Report 7943529 (Version 6)
Quarter: 2013Q1

REPORT INFORMATION
  Report Type: Spontaneous
  Country: US (occurrence: US)
  Receive Date: 20110513
  Receipt Date: 20130312
  Transmission Date: 20140127
  Serious: Yes (Death, Hospitalization, Other)
  Sender: FDA-Public Use
  Company Number: US-ELI_LILLY_AND_COMPANY-US200909005987

PATIENT
  Age: 84 Year
  Sex: Female
  Weight: 66.21 kg

DRUGS (19)
  1. FORTEO [Suspect]
     Indication: OSTEOPOROSIS
     Dosage: 20 UG, DAILY (1/D)
     Route: 058
     Dates: start: 20090616
  2. FORTEO [Suspect]
     Dosage: 20 UG, DAILY (1/D)
     Route: 058
     Dates: start: 20110202
  3. FORTEO [Suspect]
     Dosage: 20 UG, QD
     Route: 058
     Dates: start: 20110301, end: 20110418
  4. FORTEO [Suspect]
     Dosage: 20 UG, QD
     Route: 058
     Dates: start: 20110504
  5. FORTEO [Suspect]
     Dosage: 20 UG, QD
     Route: 058
  6. FORTEO [Suspect]
     Dosage: 20 UG, QD
     Route: 058
  7. FORTEO [Suspect]
     Dosage: 20 UG, QD
     Route: 058
  8. FORTEO [Suspect]
     Dosage: 20 UG, QD
     Route: 058
  9. VERAPAMIL [Concomitant]
  10. DIOVAN [Concomitant]
  11. POTASSIUM [Concomitant]
  12. FERROUS SULFATE [Concomitant]
  13. NIACINAMIDE [Concomitant]
  14. COUMADIN [Concomitant]
  15. BABY ASPIRIN [Concomitant]
  16. VITAMIN D [Concomitant]
  17. MULTIVITAMIN [Concomitant]
  18. CALCIUM [Concomitant]
  19. FISH OIL [Concomitant]

REACTIONS (8)
  - Sepsis [Fatal]
  - Disease progression [Fatal]
  - Colon cancer stage III [Recovering/Resolving]
  - Appendicitis [Recovered/Resolved]
  - Blood calcium increased [Recovered/Resolved]
  - Injection site haemorrhage [Recovered/Resolved]
  - Injection site erythema [Not Recovered/Not Resolved]
  - Injection site pruritus [Unknown]
